FAERS Safety Report 12385277 (Version 1)
Quarter: 2016Q2

REPORT INFORMATION
  Report Type: Spontaneous
  Country: US (occurrence: None)
  Receive Date: 20160518
  Receipt Date: 20160518
  Transmission Date: 20160815
  Serious: No
  Sender: FDA-Public Use
  Company Number: None

PATIENT
  Age: 86 Year
  Sex: Male

DRUGS (3)
  1. CAPECITABINE 500MG TAB [Suspect]
     Active Substance: CAPECITABINE
     Indication: COLON CANCER
     Route: 048
     Dates: start: 20160211
  2. LOSARTAN POT [Concomitant]
     Active Substance: LOSARTAN POTASSIUM
  3. ACEBUTOLOL [Concomitant]
     Active Substance: ACEBUTOLOL

REACTIONS (3)
  - Peripheral swelling [None]
  - Pain in extremity [None]
  - Skin fissures [None]

NARRATIVE: CASE EVENT DATE: 2016
